FAERS Safety Report 4503184-X (Version None)
Quarter: 2004Q4

REPORT INFORMATION
  Report Type: 
  Country: None (occurrence: None)
  Receive Date: 20041117
  Receipt Date: 20040924
  Transmission Date: 20050328
  Serious: Yes (Other)
  Sender: FDA-Public Use
  Company Number: CA-BRISTOL-MYERS SQUIBB COMPANY-12714937

PATIENT
  Age: 76 Year
  Sex: Male

DRUGS (13)
  1. TEQUIN [Suspect]
     Indication: BRONCHITIS
     Route: 048
     Dates: start: 20040908, end: 20040909
  2. AVANDIA [Concomitant]
  3. METFORMIN HCL [Concomitant]
     Dosage: 1 TAB AM, 1/2 TAB LUNCH, 1/2 TAB SUPPER, 1/2 TAB BEDTIME
  4. GLYBURIDE [Concomitant]
  5. PRANDASE [Concomitant]
     Dosage: 1/2 TAB THREE TIMES DAILY
  6. AVAPRO [Concomitant]
  7. CARDURA [Concomitant]
     Dosage: 2 MG IN AM AND 4 MG IN PM
  8. ALTACE [Concomitant]
  9. LIPIDIL [Concomitant]
     Dosage: AT BEDTIME
  10. METOPROLOL [Concomitant]
  11. LIPITOR [Concomitant]
  12. LASIX [Concomitant]
  13. PREVACID [Concomitant]

REACTIONS (6)
  - CONFUSIONAL STATE [None]
  - DELIRIUM [None]
  - DELUSION [None]
  - HALLUCINATION, VISUAL [None]
  - HYPERGLYCAEMIA [None]
  - HYPOGLYCAEMIA [None]
